FAERS Safety Report 21350561 (Version 5)
Quarter: 2022Q4

REPORT INFORMATION
  Report Type: Report from Study
  Country: US (occurrence: US)
  Receive Date: 20220919
  Receipt Date: 20221219
  Transmission Date: 20230113
  Serious: No
  Sender: FDA-Public Use
  Company Number: US-NOVARTISTESTPH-NVSC2022US207509

PATIENT
  Sex: Female

DRUGS (1)
  1. GLATOPA [Suspect]
     Active Substance: GLATIRAMER ACETATE
     Indication: Product used for unknown indication
     Dosage: UNK UNK, QD
     Route: 065

REACTIONS (6)
  - Injection site discharge [Unknown]
  - Device mechanical issue [Unknown]
  - Device delivery system issue [Unknown]
  - Product use complaint [Unknown]
  - Wrong technique in device usage process [Unknown]
  - Incorrect product administration duration [Unknown]
